FAERS Safety Report 8259064-X (Version None)
Quarter: 2012Q2

REPORT INFORMATION
  Report Type: 
  Country: None (occurrence: None)
  Receive Date: 20120404
  Receipt Date: 20120327
  Transmission Date: 20120825
  Serious: Yes (Other)
  Sender: FDA-Public Use
  Company Number: US-JNJFOC-20120313552

PATIENT
  Age: 9 Decade
  Sex: Male

DRUGS (2)
  1. VALACYCLOVIR [Suspect]
     Indication: PRODUCT USED FOR UNKNOWN INDICATION
     Route: 065
  2. NUCYNTA [Suspect]
     Indication: PAIN
     Route: 065

REACTIONS (2)
  - FEELING ABNORMAL [None]
  - HALLUCINATION [None]
